FAERS Safety Report 9829589 (Version 1)
Quarter: 2014Q1

REPORT INFORMATION
  Report Type: Spontaneous
  Country: US (occurrence: US)
  Receive Date: 20140120
  Receipt Date: 20140120
  Transmission Date: 20141002
  Serious: No
  Sender: FDA-Public Use
  Company Number: US-BIOGENIDEC-2014BI004289

PATIENT
  Sex: Female

DRUGS (1)
  1. TECFIDERA [Suspect]
     Indication: PRODUCT USED FOR UNKNOWN INDICATION
     Dates: start: 20131008, end: 20131018

REACTIONS (4)
  - Disturbance in attention [Recovered/Resolved]
  - Speech disorder [Recovered/Resolved]
  - Gait disturbance [Recovered/Resolved]
  - Flushing [Recovered/Resolved]
